FAERS Safety Report 4738045-4 (Version None)
Quarter: 2005Q3

REPORT INFORMATION
  Report Type: 
  Country: None (occurrence: None)
  Receive Date: 20050805
  Receipt Date: 20050725
  Transmission Date: 20060218
  Serious: Yes (Life-Threatening, Hospitalization, Other)
  Sender: FDA-Public Use
  Company Number: 2005098665

PATIENT
  Age: 55 Year
  Sex: Male
  Weight: 62 kg

DRUGS (7)
  1. PHENYTOIN SODIUM [Suspect]
     Indication: EPILEPSY
     Dosage: 450 MG (45P MG, 1 IN 1 D), ORAL
     Route: 048
     Dates: start: 20011201
  2. ATORVASTATIN CALCIUM [Suspect]
     Indication: BLOOD CHOLESTEROL INCREASED
     Dosage: ORAL
     Route: 048
     Dates: end: 20040101
  3. ACETYLSALICYLIC ACID SRT [Concomitant]
  4. SIMVASTATIN [Concomitant]
  5. BEZAFIBRATE (BEZAFIBRATE) [Concomitant]
  6. ALENDRONATE SODIUM [Concomitant]
  7. CALCIUM WITH VITAMIN DALCIFEROL) [Concomitant]

REACTIONS (13)
  - AUTOIMMUNE DISORDER [None]
  - BLOOD CREATINE PHOSPHOKINASE INCREASED [None]
  - C-REACTIVE PROTEIN INCREASED [None]
  - CELLULITIS [None]
  - COLITIS ULCERATIVE [None]
  - DIARRHOEA [None]
  - GASTROINTESTINAL DISORDER [None]
  - MYOSITIS [None]
  - OEDEMA [None]
  - PAIN [None]
  - RASH [None]
  - RED BLOOD CELL SEDIMENTATION RATE INCREASED [None]
  - WEIGHT DECREASED [None]
